FAERS Safety Report 10851170 (Version 1)
Quarter: 2015Q1

REPORT INFORMATION
  Report Type: Spontaneous
  Country: None (occurrence: US)
  Receive Date: 20150222
  Receipt Date: 20150222
  Transmission Date: 20150721
  Serious: Yes (Other)
  Sender: FDA-Public Use
  Company Number: US-ALLERGAN-1400733US

PATIENT
  Sex: Female

DRUGS (5)
  1. OMEPRAZOLE. [Concomitant]
     Active Substance: OMEPRAZOLE
     Indication: PRODUCT USED FOR UNKNOWN INDICATION
  2. BOTOX COSMETIC [Suspect]
     Active Substance: ONABOTULINUMTOXINA
     Indication: SKIN WRINKLING
     Dosage: 12 UNITS, SINGLE
     Route: 030
     Dates: start: 20131220, end: 20131220
  3. BOTOX COSMETIC [Suspect]
     Active Substance: ONABOTULINUMTOXINA
     Dosage: 8 UNK, UNK
     Route: 030
     Dates: start: 20131220, end: 20131220
  4. JUVEDERM [Suspect]
     Active Substance: HYALURONIC ACID
     Indication: SKIN WRINKLING
     Dosage: .04 UNK, UNK
     Dates: start: 20131220, end: 20131220
  5. BOTOX COSMETIC [Suspect]
     Active Substance: ONABOTULINUMTOXINA
     Indication: SKIN WRINKLING
     Dosage: 8 UNITS, SINGLE
     Route: 030
     Dates: start: 20131220, end: 20131220

REACTIONS (1)
  - Psoriasis [Unknown]
